FAERS Safety Report 20155885 (Version 1)
Quarter: 2021Q4

REPORT INFORMATION
  Report Type: Spontaneous
  Country: AT (occurrence: AT)
  Receive Date: 20211207
  Receipt Date: 20211207
  Transmission Date: 20220303
  Serious: No
  Sender: FDA-Public Use
  Company Number: AT-LUPIN PHARMACEUTICALS INC.-2021-23855

PATIENT
  Age: 28 Year
  Sex: Female

DRUGS (5)
  1. LEVOTHYROXINE SODIUM [Suspect]
     Active Substance: LEVOTHYROXINE SODIUM
     Indication: Hypothyroidism
     Dosage: 500 MICROG/5ML WEEKLY SPLIT DOSAGE; RECEIVED 2.5ML OF LEVOTHYROXINE SODIUM, WHICH WAS INJECTED SUBCU
     Route: 058
  2. LEVOTHYROXINE SODIUM [Suspect]
     Active Substance: LEVOTHYROXINE SODIUM
     Dosage: 300 MICROGRAM, DISPENSED AS 60 DROPS OF AQUEOUS LEVOTHYROXINE SODIUM, 100 MICROG/ML CONCOMITANT WITH
     Route: 048
  3. LEVOTHYROXINE SODIUM [Suspect]
     Active Substance: LEVOTHYROXINE SODIUM
     Dosage: 700 MICROGRAM, QD, TABLET
     Route: 048
  4. LEVOTHYROXINE SODIUM [Suspect]
     Active Substance: LEVOTHYROXINE SODIUM
     Dosage: 500 MICROGRAM, INJECTION
     Route: 042
  5. LEVOTHYROXINE SODIUM [Suspect]
     Active Substance: LEVOTHYROXINE SODIUM
     Dosage: 700 MICROGRAM, DAILY, TABLET
     Route: 048

REACTIONS (2)
  - Off label use [Unknown]
  - Drug ineffective [Unknown]
